FAERS Safety Report 19775779 (Version 2)
Quarter: 2021Q4

REPORT INFORMATION
  Report Type: Report from Study
  Country: US (occurrence: US)
  Receive Date: 20210901
  Receipt Date: 20211210
  Transmission Date: 20220303
  Serious: Yes (Hospitalization)
  Sender: FDA-Public Use
  Company Number: US-SAARTEMIS-SAC202010200229

PATIENT
  Age: 73 Year
  Sex: Male

DRUGS (2)
  1. DUPILUMAB [Suspect]
     Active Substance: DUPILUMAB
     Indication: Dermatitis atopic
     Dosage: 600 MG, TOTAL
     Route: 058
     Dates: start: 20200101, end: 20200101
  2. DUPILUMAB [Suspect]
     Active Substance: DUPILUMAB
     Dosage: 300 MG, QOW
     Route: 058
     Dates: start: 202001, end: 202108

REACTIONS (2)
  - Post procedural complication [Unknown]
  - Spinal operation [Recovered/Resolved]

NARRATIVE: CASE EVENT DATE: 20210801
